FAERS Safety Report 6444751-6 (Version None)
Quarter: 2009Q4

REPORT INFORMATION
  Report Type: 
  Country: None (occurrence: None)
  Receive Date: 20091118
  Receipt Date: 20091110
  Transmission Date: 20100525
  Serious: Yes (Other)
  Sender: FDA-Public Use
  Company Number: B0587106A

PATIENT
  Sex: Female
  Weight: 50 kg

DRUGS (11)
  1. SERETIDE [Suspect]
     Indication: ASTHMA
     Route: 055
     Dates: start: 20090801, end: 20090801
  2. CALONAL [Suspect]
     Indication: DRUG USE FOR UNKNOWN INDICATION
     Dosage: 200MG PER DAY
     Route: 048
     Dates: start: 20090801, end: 20090801
  3. MEDICON [Suspect]
     Indication: DRUG USE FOR UNKNOWN INDICATION
     Dosage: 2U PER DAY
     Route: 065
     Dates: start: 20090801, end: 20090801
  4. KIPRES [Suspect]
     Indication: DRUG USE FOR UNKNOWN INDICATION
     Dosage: 1U PER DAY
     Route: 048
     Dates: start: 20090801, end: 20090801
  5. EBASTEL [Suspect]
     Indication: DRUG USE FOR UNKNOWN INDICATION
     Dosage: 1U PER DAY
     Route: 048
     Dates: start: 20090801, end: 20090801
  6. MUCOSOLVAN [Suspect]
     Indication: DRUG USE FOR UNKNOWN INDICATION
     Dosage: 1U PER DAY
     Route: 048
     Dates: start: 20090801, end: 20090801
  7. MUCOSTA [Suspect]
     Indication: DRUG USE FOR UNKNOWN INDICATION
     Dosage: 1U PER DAY
     Route: 048
     Dates: start: 20090801, end: 20090801
  8. OZEX [Concomitant]
     Indication: DRUG USE FOR UNKNOWN INDICATION
     Route: 048
     Dates: start: 20090801, end: 20090801
  9. IBRUPROFEN [Concomitant]
  10. SURGAM [Concomitant]
  11. INDOMETHACIN [Concomitant]

REACTIONS (8)
  - ANAPHYLACTIC REACTION [None]
  - DYSPNOEA [None]
  - FACE OEDEMA [None]
  - LARYNGEAL OEDEMA [None]
  - PRURITUS [None]
  - RASH [None]
  - THROAT IRRITATION [None]
  - URTICARIA [None]
